FAERS Safety Report 8887427 (Version 1)
Quarter: 2012Q4

REPORT INFORMATION
  Report Type: Spontaneous
  Country: US (occurrence: None)
  Receive Date: 20121101
  Receipt Date: 20121101
  Transmission Date: 20130627
  Serious: Yes (Other)
  Sender: FDA-Public Use
  Company Number: None

PATIENT
  Age: 80 Year
  Sex: Female
  Weight: 72.58 kg

DRUGS (1)
  1. PROLIA [Suspect]
     Indication: BONE DISORDER
     Dates: start: 201206

REACTIONS (11)
  - Dry eye [None]
  - Blister [None]
  - Swelling face [None]
  - Eye pruritus [None]
  - Insomnia [None]
  - Skin exfoliation [None]
  - Back pain [None]
  - Pain in extremity [None]
  - Gout [None]
  - Infection [None]
  - Ocular hyperaemia [None]
